FAERS Safety Report 8091963-4 (Version None)
Quarter: 2012Q1

REPORT INFORMATION
  Report Type: 
  Country: None (occurrence: None)
  Receive Date: 20120129
  Receipt Date: 20111115
  Transmission Date: 20120608
  Serious: No
  Sender: FDA-Public Use
  Company Number: US-ABBOTT-11P-163-0867867-00

PATIENT
  Age: 64 Year
  Sex: Female

DRUGS (15)
  1. LISINOPRIL [Concomitant]
     Indication: HYPERTENSION
     Dosage: 20 MG IN AM, 10 MG AT HOUR OF SLEEP
  2. CELEXA [Concomitant]
     Indication: DEPRESSION
  3. MULTIVITAMIN [Concomitant]
     Indication: MEDICAL DIET
  4. IRON [Concomitant]
     Indication: MEDICAL DIET
     Dosage: DAILY
  5. HUMIRA [Suspect]
     Indication: CROHN'S DISEASE
     Dates: start: 20110818
  6. CELEXA [Concomitant]
     Indication: ANXIETY
  7. VICODIN [Concomitant]
     Indication: PAIN
  8. PRILOSEC [Concomitant]
     Indication: GASTROOESOPHAGEAL REFLUX DISEASE
  9. PRILOSEC [Concomitant]
     Indication: BARRETT'S OESOPHAGUS
  10. XANAX [Concomitant]
     Indication: ANXIETY
     Dosage: 1 TABLET 2-3 TIMES PER DAY
  11. CALCIUM [Concomitant]
     Indication: MEDICAL DIET
  12. HUMIRA [Suspect]
     Dates: start: 20110901
  13. ASPIRIN [Concomitant]
     Indication: CARDIAC DISORDER
  14. VITAMIN D [Concomitant]
     Indication: MEDICAL DIET
  15. VITAMIN B-12 [Concomitant]
     Indication: MEDICAL DIET
     Dosage: 1 EVERY 2 MONTHS

REACTIONS (8)
  - RESPIRATORY TRACT CONGESTION [None]
  - NODULE [None]
  - INFLUENZA LIKE ILLNESS [None]
  - ABDOMINAL DISTENSION [None]
  - PAIN [None]
  - STRESS [None]
  - ABDOMINAL DISCOMFORT [None]
  - ASTHENIA [None]
